FAERS Safety Report 9328190 (Version 1)
Quarter: 2013Q2

REPORT INFORMATION
  Report Type: Spontaneous
  Country: CA (occurrence: CA)
  Receive Date: 20130604
  Receipt Date: 20130604
  Transmission Date: 20140414
  Serious: Yes (Other)
  Sender: FDA-Public Use
  Company Number: CA-PURDUE-CAN-2013-0004211

PATIENT
  Sex: Male

DRUGS (2)
  1. OXYIR TABLETS 10 MG [Suspect]
     Indication: BREAKTHROUGH PAIN
     Dosage: 2 TABLET, Q3- 4H
  2. FENTANYL [Suspect]
     Indication: PAIN
     Dosage: 75 MCG, EVERY 60 HOURS

REACTIONS (6)
  - Depression [Not Recovered/Not Resolved]
  - Activities of daily living impaired [Not Recovered/Not Resolved]
  - Drug ineffective [Not Recovered/Not Resolved]
  - Pain [Not Recovered/Not Resolved]
  - Hypoaesthesia [Not Recovered/Not Resolved]
  - Intentional drug misuse [Unknown]
